FAERS Safety Report 25605779 (Version 1)
Quarter: 2025Q3

REPORT INFORMATION
  Report Type: Spontaneous
  Country: US (occurrence: US)
  Receive Date: 20250725
  Receipt Date: 20250725
  Transmission Date: 20251020
  Serious: No
  Sender: SANOFI AVENTIS
  Company Number: US-SA-2025SA212354

PATIENT
  Age: 2 Year
  Sex: Female
  Weight: 18.14 kg

DRUGS (1)
  1. DUPIXENT [Suspect]
     Active Substance: DUPILUMAB
     Dosage: UNK UNK, Q4W
     Route: 058

REACTIONS (3)
  - Skin haemorrhage [Unknown]
  - Symptom recurrence [Unknown]
  - Skin weeping [Unknown]
